FAERS Safety Report 8118655 (Version 2)
Quarter: 2013Q3

REPORT INFORMATION
  Report Type: Spontaneous
  Country: FR (occurrence: FR)
  Receive Date: 20110902
  Receipt Date: 20130923
  Transmission Date: 20140515
  Serious: Yes (Life-Threatening)
  Sender: FDA-Public Use
  Company Number: FR-ALEXION PHARMACEUTICALS INC.-A201101314

PATIENT
  Sex: Female

DRUGS (2)
  1. SOLIRIS 300MG [Suspect]
     Indication: HAEMOLYTIC URAEMIC SYNDROME
     Dosage: UNK
     Dates: start: 20110713
  2. SOLIRIS 300MG [Suspect]
     Indication: OFF LABEL USE
     Dosage: UNK
     Dates: end: 201108

REACTIONS (2)
  - Renal artery thrombosis [Unknown]
  - Kidney transplant rejection [Unknown]
